FAERS Safety Report 26061905 (Version 1)
Quarter: 2025Q4

REPORT INFORMATION
  Report Type: Spontaneous
  Country: US (occurrence: US)
  Receive Date: 20251119
  Receipt Date: 20251119
  Transmission Date: 20260118
  Serious: No
  Sender: TIANJIN TIANYAO PHARMACEUTICALS CO.,LTD.
  Company Number: US-tianyaoyaoye-2025-tjpc-000008

PATIENT
  Age: 70 Year
  Sex: Female

DRUGS (1)
  1. METHYLPREDNISOLONE [Suspect]
     Active Substance: METHYLPREDNISOLONE
     Indication: Bronchitis
     Dosage: 1 TABLET(4MG), ONE DAY
     Route: 048
     Dates: start: 20250807, end: 20250807

REACTIONS (2)
  - Hemiplegia [Not Recovered/Not Resolved]
  - Cerebrovascular accident [Not Recovered/Not Resolved]

NARRATIVE: CASE EVENT DATE: 20250807
